FAERS Safety Report 8701470 (Version 2)
Quarter: 2012Q4

REPORT INFORMATION
  Report Type: 
  Country: FR (occurrence: FR)
  Receive Date: 20120802
  Receipt Date: 20120927
  Transmission Date: 20130627
  Serious: Yes (Hospitalization)
  Sender: FDA-Public Use
  Company Number: FR-SANOFI-AVENTIS-2012SA053587

PATIENT
  Age: 74 Year
  Sex: Male

DRUGS (8)
  1. LASILIX [Suspect]
     Indication: DRUG USE FOR UNKNOWN INDICATION
     Dosage: morning
     Route: 048
     Dates: start: 20120716
  2. BISOPROLOL [Concomitant]
     Indication: CARDIAC DISORDER NOS
     Route: 048
     Dates: start: 20120726
  3. PERINDOPRIL [Concomitant]
     Indication: CARDIAC DISORDER NOS
     Route: 048
  4. ESOMEPRAZOLE [Concomitant]
     Indication: PROPHYLAXIS
     Route: 048
  5. ATORVASTATIN [Concomitant]
     Indication: CARDIAC DISORDER NOS
     Route: 048
  6. ATORVASTATIN [Concomitant]
     Indication: HYPERCHOLESTEROLEMIA
     Route: 048
  7. DUOPLAVIN [Concomitant]
     Indication: CARDIAC DISORDER NOS
     Dosage: Dose:1 unit(s)
     Route: 048
  8. PROPYLTHIOURACIL [Concomitant]
     Indication: HYPERTHYROIDISM
     Route: 048

REACTIONS (2)
  - Coma [Recovering/Resolving]
  - Pulmonary oedema [Recovering/Resolving]
